FAERS Safety Report 6478863-8 (Version None)
Quarter: 2009Q4

REPORT INFORMATION
  Report Type: 
  Country: None (occurrence: None)
  Receive Date: 20091207
  Receipt Date: 20091130
  Transmission Date: 20100525
  Serious: Yes (Hospitalization)
  Sender: FDA-Public Use
  Company Number: JP-ABBOTT-09P-087-0611299-00

PATIENT
  Sex: Male
  Weight: 64.8 kg

DRUGS (9)
  1. HUMIRA [Suspect]
     Indication: RHEUMATOID ARTHRITIS
     Dates: start: 20081002
  2. PREDNISOLONE [Concomitant]
     Indication: RHEUMATOID ARTHRITIS
     Dosage: DAILY
     Route: 048
     Dates: start: 20081002
  3. TICLOPIDINE HYDROCHLORIDE [Concomitant]
     Indication: CEREBRAL INFARCTION
     Dosage: DAILY
  4. PRAVASTATIN SODIUM [Concomitant]
     Indication: HYPERLIPIDAEMIA
     Dosage: DAILY
  5. FAMOTIDINE [Concomitant]
     Indication: PROPHYLAXIS AGAINST GASTROINTESTINAL ULCER
     Dosage: DAILY
  6. IPRIFLAVONE [Concomitant]
     Indication: OSTEOPOROSIS PROPHYLAXIS
     Dosage: DAILY
  7. DICLOFENAC SODIUM [Concomitant]
     Indication: RHEUMATOID ARTHRITIS
     Dosage: DAILY
  8. ZOLPIDEM TARTRATE [Concomitant]
     Indication: SLEEP DISORDER
     Dosage: DAILY
  9. SENNA LEAF/SENNA POD [Concomitant]
     Indication: CONSTIPATION
     Dosage: DAILY

REACTIONS (3)
  - DYSPHAGIA [None]
  - EPIGLOTTITIS [None]
  - LARYNGEAL ULCERATION [None]
